FAERS Safety Report 21123953 (Version 1)
Quarter: 2022Q3

REPORT INFORMATION
  Report Type: Report from Study
  Country: CO (occurrence: CO)
  Receive Date: 20220725
  Receipt Date: 20220725
  Transmission Date: 20221027
  Serious: Yes (Disabling, Other)
  Sender: FDA-Public Use
  Company Number: CO-ABBVIE-22K-036-4447215-00

PATIENT
  Age: 51 Year
  Sex: Male
  Weight: 104 kg

DRUGS (6)
  1. HUMIRA [Suspect]
     Active Substance: ADALIMUMAB
     Indication: Ankylosing spondylitis
     Route: 058
     Dates: end: 20220515
  2. HUMIRA [Suspect]
     Active Substance: ADALIMUMAB
     Route: 058
  3. HUMIRA [Suspect]
     Active Substance: ADALIMUMAB
     Indication: Product used for unknown indication
     Route: 058
     Dates: start: 20121126
  4. SULFASALAZINE [Concomitant]
     Active Substance: SULFASALAZINE
     Indication: Antiinflammatory therapy
     Dosage: 2 IN THE MORNING 2 AT NIGHT
     Route: 048
  5. SULFASALAZINE [Concomitant]
     Active Substance: SULFASALAZINE
     Indication: Ankylosing spondylitis
  6. ACETAMINOPHEN\TRAMADOL [Concomitant]
     Active Substance: ACETAMINOPHEN\TRAMADOL
     Indication: Product used for unknown indication
     Dates: start: 202110

REACTIONS (12)
  - Gait disturbance [Recovering/Resolving]
  - Haemorrhoids [Recovering/Resolving]
  - Anal fissure [Recovering/Resolving]
  - Dyschezia [Recovering/Resolving]
  - Pain [Recovered/Resolved]
  - Pain in extremity [Recovering/Resolving]
  - Groin pain [Recovering/Resolving]
  - Bone pain [Recovering/Resolving]
  - Proctalgia [Recovered/Resolved]
  - Ankylosing spondylitis [Not Recovered/Not Resolved]
  - Ankylosing spondylitis [Recovered/Resolved]
  - Therapeutic response shortened [Not Recovered/Not Resolved]

NARRATIVE: CASE EVENT DATE: 20220605
